FAERS Safety Report 13739005 (Version 1)
Quarter: 2017Q3

REPORT INFORMATION
  Report Type: Report from Study
  Country: US (occurrence: US)
  Receive Date: 20170710
  Receipt Date: 20170710
  Transmission Date: 20171127
  Serious: No
  Sender: FDA-Public Use
  Company Number: US-SAOL THERAPEUTICS-0701275282

PATIENT
  Sex: Male

DRUGS (8)
  1. BUPIVACAINE. [Suspect]
     Active Substance: BUPIVACAINE
     Dosage: 13.326 MG, \DAY
     Route: 037
  2. FENTANYL. [Suspect]
     Active Substance: FENTANYL
     Dosage: 129.92 ?G, \DAY
     Route: 037
  3. COMPOUNDED BACLOFEN [Suspect]
     Active Substance: BACLOFEN
     Indication: PAIN
     Dosage: 213.21 ?G, \DAY
     Route: 037
  4. BUPIVACAINE. [Suspect]
     Active Substance: BUPIVACAINE
     Dosage: 10.827 MG, \DAY
     Route: 037
  5. COMPOUNDED BACLOFEN [Suspect]
     Active Substance: BACLOFEN
     Dosage: 173.23 ?G, \DAY
     Route: 037
  6. FENTANYL. [Suspect]
     Active Substance: FENTANYL
     Dosage: 159.91 ?G, \DAY
     Route: 037
  7. CLONIDINE. [Suspect]
     Active Substance: CLONIDINE
     Dosage: 173.23 ?G, \DAY
     Route: 037
  8. CLONIDINE. [Suspect]
     Active Substance: CLONIDINE
     Dosage: 213.21 ?G, \DAY
     Route: 037

REACTIONS (4)
  - Dizziness [Recovered/Resolved]
  - Hypoaesthesia [Recovered/Resolved]
  - Off label use [Unknown]
  - Infusion site pain [Recovered/Resolved]
